FAERS Safety Report 5071756-2 (Version None)
Quarter: 2006Q3

REPORT INFORMATION
  Report Type: 
  Country: None (occurrence: None)
  Receive Date: 20060801
  Receipt Date: 20060719
  Transmission Date: 20061208
  Serious: Yes (Death)
  Sender: FDA-Public Use
  Company Number: RU200607003479

PATIENT
  Sex: Male

DRUGS (3)
  1. ZYPREXA [Suspect]
     Dosage: 10 MG, 2/D, ORAL
     Route: 048
     Dates: start: 20060703, end: 20060714
  2. CYMBALTA [Suspect]
     Dosage: 60 MG, DAILY (1/D)
     Dates: start: 20060703
  3. PHENAZEPAM [Concomitant]

REACTIONS (1)
  - COMPLETED SUICIDE [None]
